FAERS Safety Report 6265380-3 (Version None)
Quarter: 2009Q3

REPORT INFORMATION
  Report Type: 
  Country: None (occurrence: None)
  Receive Date: 20090713
  Receipt Date: 20090701
  Transmission Date: 20100115
  Serious: Yes (Hospitalization)
  Sender: FDA-Public Use
  Company Number: US-MYLANLABS-2009S1011690

PATIENT
  Age: 73 Year
  Sex: Female
  Weight: 105.69 kg

DRUGS (22)
  1. FENTANYL TRANSDERMAL SYSTEM [Suspect]
     Indication: BACK PAIN
     Dosage: X1PATCH
     Route: 062
     Dates: start: 20090301, end: 20090301
  2. FENTANYL TRANSDERMAL SYSTEM [Suspect]
     Indication: ARTHRALGIA
     Dosage: X1PATCH
     Route: 062
     Dates: start: 20090301, end: 20090301
  3. FOLIC ACID [Concomitant]
     Route: 048
     Dates: start: 20080228
  4. AVAPRO [Concomitant]
     Route: 048
     Dates: start: 20000915
  5. LASIX [Concomitant]
     Route: 048
     Dates: start: 20080111
  6. LOVASTATIN [Concomitant]
     Route: 048
     Dates: start: 20060710
  7. VITAMIN D [Concomitant]
     Dates: start: 20080218
  8. VITAMIN K [Concomitant]
     Dates: start: 20080218
  9. DIFLUNISAL [Concomitant]
  10. DIAZEPAM [Concomitant]
     Route: 048
     Dates: start: 20030304
  11. GLIPIZIDE [Concomitant]
     Route: 048
     Dates: start: 20000628
  12. MECLIZINE [Concomitant]
     Route: 048
     Dates: start: 20061005
  13. LEVOTHYROXINE [Concomitant]
     Route: 048
     Dates: start: 20000627
  14. ARICEPT [Concomitant]
     Route: 048
     Dates: start: 20060828
  15. GABAPENTIN [Concomitant]
     Route: 048
     Dates: start: 20070502
  16. SEROQUEL [Concomitant]
     Route: 048
     Dates: start: 20060712
  17. ZEMPLAR [Concomitant]
     Dates: start: 20080610
  18. OMEPRAZOLE [Concomitant]
     Dates: start: 20060828
  19. OXYCODONE [Concomitant]
     Dates: start: 20070727
  20. LIDODERM [Concomitant]
     Dates: start: 20070625
  21. HYDROCHLOROTHIAZIDE [Concomitant]
  22. SIMVASTATIN [Concomitant]

REACTIONS (5)
  - ABNORMAL BEHAVIOUR [None]
  - AMNESIA [None]
  - EMOTIONAL DISTRESS [None]
  - INAPPROPRIATE SCHEDULE OF DRUG ADMINISTRATION [None]
  - LACRIMATION INCREASED [None]
